FAERS Safety Report 7070378-1 (Version None)
Quarter: 2010Q4

REPORT INFORMATION
  Report Type: 
  Country: None (occurrence: None)
  Receive Date: 20101029
  Receipt Date: 20101021
  Transmission Date: 20110411
  Serious: Yes (Hospitalization)
  Sender: FDA-Public Use
  Company Number: US-BIOGENIDEC-2010BI036426

PATIENT
  Age: 55 Year
  Sex: Female
  Weight: 79 kg

DRUGS (11)
  1. TYSABRI [Suspect]
     Indication: MULTIPLE SCLEROSIS
     Route: 042
     Dates: start: 20090617
  2. SIMVASTATIN [Concomitant]
     Indication: BLOOD CHOLESTEROL INCREASED
     Route: 048
     Dates: start: 19960101
  3. IMPRIM [Concomitant]
     Indication: SLEEP DISORDER
     Dates: start: 20040101
  4. TRAZODONE HCL [Concomitant]
     Indication: SLEEP DISORDER
     Route: 048
  5. SYNTHROID [Concomitant]
     Indication: HYPOTHYROIDISM
     Dosage: DOSE UNIT:0
     Route: 048
     Dates: start: 19920801
  6. ANTIHISTAMINE [Concomitant]
  7. PERCOGESIC [Concomitant]
  8. GABAPENTIN [Concomitant]
  9. CYCLOBENZAPRINE [Concomitant]
     Indication: MUSCLE RELAXANT THERAPY
     Route: 048
     Dates: start: 20100626, end: 20101020
  10. HYDROCODONE [Concomitant]
     Indication: PAIN
     Route: 048
     Dates: start: 20100626, end: 20101020
  11. HYDROCODONE [Concomitant]
     Route: 048
     Dates: start: 20100626, end: 20101020

REACTIONS (4)
  - CERVICAL SPINAL STENOSIS [None]
  - CERVICOBRACHIAL SYNDROME [None]
  - EXOSTOSIS [None]
  - INTERVERTEBRAL DISC PROTRUSION [None]
